FAERS Safety Report 21146384 (Version 1)
Quarter: 2022Q3

REPORT INFORMATION
  Report Type: Spontaneous
  Country: IN (occurrence: IN)
  Receive Date: 20220729
  Receipt Date: 20220729
  Transmission Date: 20221027
  Serious: Yes (Hospitalization, Other)
  Sender: FDA-Public Use
  Company Number: IN-SUN PHARMACEUTICAL INDUSTRIES LTD-2022R1-346454

PATIENT
  Age: 72 Year
  Sex: Female

DRUGS (2)
  1. OLANZAPINE [Suspect]
     Active Substance: OLANZAPINE
     Indication: Psychotic symptom
     Dosage: 2.5 MG
     Route: 065
  2. RISPERIDONE [Suspect]
     Active Substance: RISPERIDONE
     Indication: Psychotic symptom
     Dosage: 0.5 MG
     Route: 065

REACTIONS (5)
  - Extrapyramidal disorder [Recovering/Resolving]
  - Cognitive disorder [Unknown]
  - Cogwheel rigidity [Unknown]
  - Bradykinesia [Unknown]
  - Agnosia [Unknown]
